FAERS Safety Report 7437660-7 (Version None)
Quarter: 2011Q2

REPORT INFORMATION
  Report Type: 
  Country: None (occurrence: None)
  Receive Date: 20110426
  Receipt Date: 20110324
  Transmission Date: 20111010
  Serious: Yes (Hospitalization)
  Sender: FDA-Public Use
  Company Number: KR-ROCHE-762191

PATIENT
  Sex: Female
  Weight: 49 kg

DRUGS (2)
  1. CAPECITABINE [Suspect]
     Dosage: 1600 UNK, Q14D
     Route: 048
     Dates: start: 20100114
  2. LAPATINIB [Suspect]
     Dosage: 1250 UNK, Q21D
     Route: 048
     Dates: start: 20100114

REACTIONS (1)
  - HEADACHE [None]
